FAERS Safety Report 15464049 (Version 1)
Quarter: 2018Q4

REPORT INFORMATION
  Report Type: Spontaneous
  Country: US (occurrence: US)
  Receive Date: 20181004
  Receipt Date: 20181004
  Transmission Date: 20190204
  Serious: Yes (Hospitalization)
  Sender: FDA-Public Use
  Company Number: US-JNJFOC-20181003808

PATIENT
  Age: 78 Year
  Sex: Male

DRUGS (10)
  1. SIMVASTATIN. [Concomitant]
     Active Substance: SIMVASTATIN
  2. IMBRUVICA [Suspect]
     Active Substance: IBRUTINIB
     Indication: WALDENSTROM^S MACROGLOBULINAEMIA
     Route: 048
     Dates: start: 201804, end: 2018
  3. MAGNESIUM [Concomitant]
     Active Substance: MAGNESIUM
  4. PROGRAF [Concomitant]
     Active Substance: TACROLIMUS\TACROLIMUS ANHYDROUS
  5. DIFLUCAN [Concomitant]
     Active Substance: FLUCONAZOLE
  6. PLETAL [Concomitant]
     Active Substance: CILOSTAZOL
  7. VITAMIN D [Concomitant]
     Active Substance: CHOLECALCIFEROL
  8. FLOMAX [Concomitant]
     Active Substance: TAMSULOSIN HYDROCHLORIDE
  9. ELIQUIS [Concomitant]
     Active Substance: APIXABAN
  10. PRESERVISION AREDS [Concomitant]
     Active Substance: MINERALS\VITAMINS

REACTIONS (3)
  - Incorrect dose administered [Unknown]
  - Blood count abnormal [Unknown]
  - Off label use [Unknown]

NARRATIVE: CASE EVENT DATE: 201804
